FAERS Safety Report 6987562-5 (Version None)
Quarter: 2010Q3

REPORT INFORMATION
  Report Type: 
  Country: None (occurrence: None)
  Receive Date: 20100916
  Receipt Date: 20100817
  Transmission Date: 20110219
  Serious: No
  Sender: FDA-Public Use
  Company Number: US-PFIZER INC-2010098304

PATIENT
  Sex: Male

DRUGS (1)
  1. SUTENT [Suspect]
     Indication: THYROID CANCER
     Dosage: 12.5 MG, 2X/DAY
     Route: 048
     Dates: start: 20100101

REACTIONS (2)
  - FATIGUE [None]
  - GASTROOESOPHAGEAL REFLUX DISEASE [None]
